FAERS Safety Report 4642935-0 (Version None)
Quarter: 2005Q2

REPORT INFORMATION
  Report Type: 
  Country: None (occurrence: None)
  Receive Date: 20050421
  Receipt Date: 20050217
  Transmission Date: 20051028
  Serious: Yes (Hospitalization)
  Sender: FDA-Public Use
  Company Number: 2004105304

PATIENT
  Age: 82 Year
  Sex: Female
  Weight: 78 kg

DRUGS (2)
  1. CELEBREX [Suspect]
     Indication: ILL-DEFINED DISORDER
     Dosage: (200 MG, 1 IN 1 D), ORAL
     Route: 048
     Dates: start: 20040402, end: 20040908
  2. ROFECOXIB [Suspect]
     Indication: ILL-DEFINED DISORDER
     Dosage: (1 IN 1 D), ORAL
     Route: 048
     Dates: start: 20020301, end: 20040401

REACTIONS (3)
  - LEUKOCYTOCLASTIC VASCULITIS [None]
  - SKIN ULCER [None]
  - VASCULAR PURPURA [None]
